FAERS Safety Report 11814452 (Version 2)
Quarter: 2016Q1

REPORT INFORMATION
  Report Type: Report from Study
  Country: CA (occurrence: CA)
  Receive Date: 20151209
  Receipt Date: 20160229
  Transmission Date: 20160525
  Serious: Yes (Life-Threatening, Hospitalization)
  Sender: FDA-Public Use
  Company Number: CA-JNJFOC-20151206522

PATIENT
  Age: 54 Year
  Sex: Female

DRUGS (1)
  1. STELARA [Suspect]
     Active Substance: USTEKINUMAB
     Indication: PSORIASIS
     Dosage: 0, 4, 16, 28 AND EVERY 12 WEEKS
     Route: 058
     Dates: start: 20151031

REACTIONS (1)
  - Lung adenocarcinoma metastatic [Not Recovered/Not Resolved]

NARRATIVE: CASE EVENT DATE: 201511
